FAERS Safety Report 5532307-9 (Version None)
Quarter: 2007Q4

REPORT INFORMATION
  Report Type: 
  Country: None (occurrence: None)
  Receive Date: 20071203
  Receipt Date: 20071126
  Transmission Date: 20080405
  Serious: Yes (Hospitalization, Other)
  Sender: FDA-Public Use
  Company Number: DE-GENENTECH-251792

PATIENT
  Sex: Male

DRUGS (1)
  1. XOLAIR [Suspect]
     Indication: MASTOCYTOSIS
     Dosage: 150 MG, SINGLE
     Route: 058
     Dates: start: 20071001

REACTIONS (1)
  - DIARRHOEA [None]
